FAERS Safety Report 5020697-5 (Version None)
Quarter: 2006Q2

REPORT INFORMATION
  Report Type: 
  Country: None (occurrence: None)
  Receive Date: 20060602
  Receipt Date: 20060518
  Transmission Date: 20061013
  Serious: Yes (Other)
  Sender: FDA-Public Use
  Company Number: US200603000392

PATIENT
  Age: 75 Year
  Sex: Female
  Weight: 84.4 kg

DRUGS (4)
  1. HUMULIN R [Suspect]
     Indication: DIABETES MELLITUS
     Dosage: OTHER
     Route: 050
     Dates: start: 19860101
  2. HUMULIN N [Suspect]
     Indication: DIABETES MELLITUS
     Dosage: 25 U, 2/D,
     Dates: start: 19860101
  3. DIOVAN [Concomitant]
  4. TOPROL-XL [Concomitant]

REACTIONS (3)
  - BLOOD PRESSURE ABNORMAL [None]
  - PHARMACEUTICAL PRODUCT COMPLAINT [None]
  - VISUAL DISTURBANCE [None]
